FAERS Safety Report 5139554-9 (Version None)
Quarter: 2006Q4

REPORT INFORMATION
  Report Type: 
  Country: None (occurrence: None)
  Receive Date: 20061024
  Receipt Date: 20061012
  Transmission Date: 20070319
  Serious: Yes (Other)
  Sender: FDA-Public Use
  Company Number: 2006125561

PATIENT
  Sex: Female

DRUGS (1)
  1. AMLODIPINE [Suspect]
     Dosage: ORAL
     Route: 048

REACTIONS (4)
  - DYSPHAGIA [None]
  - PHARMACEUTICAL PRODUCT COMPLAINT [None]
  - THROAT IRRITATION [None]
  - ULCER [None]
